APPROVED DRUG PRODUCT: HYDROCHLOROTHIAZIDE
Active Ingredient: HYDROCHLOROTHIAZIDE
Strength: 12.5MG
Dosage Form/Route: CAPSULE;ORAL
Application: A075907 | Product #001 | TE Code: AB
Applicant: PRINSTON PHARMACEUTICAL INC
Approved: Sep 17, 2002 | RLD: No | RS: No | Type: RX